FAERS Safety Report 15153678 (Version 3)
Quarter: 2018Q3

REPORT INFORMATION
  Report Type: Spontaneous
  Country: CN (occurrence: CN)
  Receive Date: 20180717
  Receipt Date: 20180828
  Transmission Date: 20181010
  Serious: Yes (Other)
  Sender: FDA-Public Use
  Company Number: CN-GLAXOSMITHKLINE-CN2018GSK124651

PATIENT
  Sex: Male

DRUGS (2)
  1. PIPERACILLIN [Suspect]
     Active Substance: PIPERACILLIN
     Indication: EPILEPSY
  2. LAMICTAL [Suspect]
     Active Substance: LAMOTRIGINE
     Indication: EPILEPSY
     Dosage: 25 MG, QD
     Route: 048

REACTIONS (1)
  - Haemolysis [Recovered/Resolved]
